FAERS Safety Report 15492464 (Version 1)
Quarter: 2018Q4

REPORT INFORMATION
  Report Type: Spontaneous
  Country: US (occurrence: US)
  Receive Date: 20181004
  Receipt Date: 20181004
  Transmission Date: 20190205
  Serious: Yes (Hospitalization)
  Sender: FDA-Public Use
  Company Number: None

PATIENT
  Age: 28 Year
  Sex: Male
  Weight: 64 kg

DRUGS (5)
  1. ETOPOSIDE (VP-16) [Suspect]
     Active Substance: ETOPOSIDE
     Dates: end: 20180919
  2. IFOSFAMIDE. [Suspect]
     Active Substance: IFOSFAMIDE
     Dates: end: 20180722
  3. TAXOL [Suspect]
     Active Substance: PACLITAXEL
     Dates: end: 20180720
  4. CARBOPLATIN. [Suspect]
     Active Substance: CARBOPLATIN
     Dates: end: 20180919
  5. NEULASTA [Suspect]
     Active Substance: PEGFILGRASTIM
     Dates: end: 20180921

REACTIONS (7)
  - Dizziness [None]
  - Chills [None]
  - Catheter culture positive [None]
  - Citrobacter infection [None]
  - Blood culture positive [None]
  - Stem cell transplant [None]
  - Stenotrophomonas infection [None]

NARRATIVE: CASE EVENT DATE: 20180922
